FAERS Safety Report 17075774 (Version 1)
Quarter: 2019Q4

REPORT INFORMATION
  Report Type: Spontaneous
  Country: US (occurrence: US)
  Receive Date: 20191126
  Receipt Date: 20191126
  Transmission Date: 20200122
  Serious: No
  Sender: FDA-Public Use
  Company Number: US-PFIZER INC-2019510363

PATIENT
  Age: 79 Year
  Sex: Male

DRUGS (1)
  1. IBRANCE [Suspect]
     Active Substance: PALBOCICLIB
     Dosage: 100 MG, CYCLIC (DAILY FOR 21 DAYS, REST 7 DAYS. REPEAT)
     Route: 048
     Dates: start: 20191106

REACTIONS (2)
  - Hot flush [Unknown]
  - Diarrhoea [Unknown]
